FAERS Safety Report 7599798-3 (Version None)
Quarter: 2011Q2

REPORT INFORMATION
  Report Type: 
  Country: None (occurrence: None)
  Receive Date: 20110620
  Receipt Date: 20110408
  Transmission Date: 20111010
  Serious: Yes (Hospitalization)
  Sender: FDA-Public Use
  Company Number: UTC-006230

PATIENT
  Age: 50 Year
  Sex: Female
  Weight: 121.8 kg

DRUGS (4)
  1. DIURETICS [Concomitant]
  2. COUMADIN [Concomitant]
  3. TRACLEER [Concomitant]
  4. TYVASO [Suspect]
     Indication: PULMONARY ARTERIAL HYPERTENSION
     Dosage: 216 MCG (54 MCG , 4 IN 1 D), INHALATION
     Route: 055
     Dates: start: 20100701

REACTIONS (1)
  - PNEUMONIA [None]
